FAERS Safety Report 14425822 (Version 2)
Quarter: 2018Q1

REPORT INFORMATION
  Report Type: Spontaneous
  Country: GB (occurrence: GB)
  Receive Date: 20180123
  Receipt Date: 20180223
  Transmission Date: 20180509
  Serious: Yes (Life-Threatening, Hospitalization, Other)
  Sender: FDA-Public Use
  Company Number: PHHY2018GB010479

PATIENT
  Age: 61 Year
  Sex: Female

DRUGS (2)
  1. DABRAFENIB [Suspect]
     Active Substance: DABRAFENIB
     Indication: METASTATIC MALIGNANT MELANOMA
     Dosage: 150 MG, BID
     Route: 048
     Dates: start: 20171116, end: 20171225
  2. TRAMETINIB [Suspect]
     Active Substance: TRAMETINIB
     Indication: METASTATIC MALIGNANT MELANOMA
     Dosage: 2 MG, QD
     Route: 048
     Dates: start: 20171116, end: 20171225

REACTIONS (14)
  - Thrombocytopenia [Recovered/Resolved]
  - Macule [Recovering/Resolving]
  - Blister [Unknown]
  - Mobility decreased [Unknown]
  - Hypotension [Recovered/Resolved]
  - Liver function test increased [Recovering/Resolving]
  - Pyrexia [Recovered/Resolved]
  - Platelet count decreased [Unknown]
  - Confusional state [Recovered/Resolved]
  - Skin toxicity [Unknown]
  - Rash [Recovering/Resolving]
  - Lividity [Unknown]
  - Thrombotic microangiopathy [Recovering/Resolving]
  - Erythema nodosum [Recovering/Resolving]

NARRATIVE: CASE EVENT DATE: 20171225
